FAERS Safety Report 14876308 (Version 4)
Quarter: 2019Q1

REPORT INFORMATION
  Report Type: Spontaneous
  Country: US (occurrence: US)
  Receive Date: 20180510
  Receipt Date: 20190305
  Transmission Date: 20190417
  Serious: Yes (Hospitalization, Other)
  Sender: FDA-Public Use
  Company Number: US-PFIZER INC-2018189003

PATIENT
  Age: 45 Year
  Sex: Male
  Weight: 95 kg

DRUGS (1)
  1. CHANTIX [Suspect]
     Active Substance: VARENICLINE TARTRATE
     Indication: SMOKING CESSATION THERAPY
     Dosage: UNK
     Dates: start: 200804, end: 200804

REACTIONS (9)
  - Visual impairment [Unknown]
  - Cerebrovascular accident [Recovered/Resolved with Sequelae]
  - Ocular discomfort [Unknown]
  - Myocardial infarction [Recovered/Resolved]
  - Headache [Unknown]
  - Agitation [Unknown]
  - Feeling abnormal [Unknown]
  - Cardiac disorder [Unknown]
  - Eye disorder [Unknown]

NARRATIVE: CASE EVENT DATE: 2008
